FAERS Safety Report 7445729-6 (Version None)
Quarter: 2011Q2

REPORT INFORMATION
  Report Type: 
  Country: None (occurrence: None)
  Receive Date: 20110429
  Receipt Date: 20100426
  Transmission Date: 20111010
  Serious: No
  Sender: FDA-Public Use
  Company Number: US-ASTRAZENECA-2010SE18536

PATIENT
  Age: 8969 Day
  Sex: Female
  Weight: 120.2 kg

DRUGS (1)
  1. NEXIUM [Suspect]
     Route: 048
     Dates: start: 20100423

REACTIONS (2)
  - BURNING SENSATION [None]
  - HYPERSENSITIVITY [None]
